FAERS Safety Report 5061539-1 (Version None)
Quarter: 2006Q3

REPORT INFORMATION
  Report Type: 
  Country: None (occurrence: None)
  Receive Date: 20060721
  Receipt Date: 20060707
  Transmission Date: 20061208
  Serious: Yes (Hospitalization, Other)
  Sender: FDA-Public Use
  Company Number: US200607000952

PATIENT
  Age: 75 Year
  Sex: Female

DRUGS (3)
  1. HUMALOG PEN [Suspect]
     Indication: DIABETES MELLITUS
     Dosage: SLIDING SCALE
     Dates: start: 20050101
  2. NOVOLIN NPH (INSULIN HUMAN INJECTION, ISOPHANE) [Concomitant]
  3. GLUCOPHAGE [Concomitant]

REACTIONS (13)
  - ARTHRITIS [None]
  - BLOOD GLUCOSE DECREASED [None]
  - BLOOD GLUCOSE INCREASED [None]
  - COLITIS ULCERATIVE [None]
  - DEHYDRATION [None]
  - DIABETIC COMA [None]
  - ESCHERICHIA URINARY TRACT INFECTION [None]
  - HYPERKERATOSIS [None]
  - HYPERTENSION [None]
  - OEDEMA PERIPHERAL [None]
  - PYREXIA [None]
  - SEPSIS [None]
  - URINARY TRACT INFECTION [None]
